FAERS Safety Report 5985229-3 (Version None)
Quarter: 2008Q4

REPORT INFORMATION
  Report Type: 
  Country: None (occurrence: None)
  Receive Date: 20081203
  Receipt Date: 20081124
  Transmission Date: 20090506
  Serious: Yes (Hospitalization)
  Sender: FDA-Public Use
  Company Number: SP02151

PATIENT
  Age: 47 Year
  Sex: Female

DRUGS (3)
  1. OSMOPREP [Suspect]
     Indication: COLONOSCOPY
     Dosage: ORAL
     Route: 048
     Dates: start: 20081123, end: 20081123
  2. ELAVIL [Concomitant]
  3. DONNATAL [Concomitant]

REACTIONS (9)
  - HYPOAESTHESIA [None]
  - HYPOCALCAEMIA [None]
  - HYPOKALAEMIA [None]
  - HYPOMAGNESAEMIA [None]
  - MUSCLE SPASMS [None]
  - PAIN IN EXTREMITY [None]
  - PARAESTHESIA [None]
  - SENSORY LOSS [None]
  - TETANY [None]
